FAERS Safety Report 20436808 (Version 1)
Quarter: 2022Q1

REPORT INFORMATION
  Report Type: Spontaneous
  Country: US (occurrence: None)
  Receive Date: 20220204
  Receipt Date: 20220204
  Transmission Date: 20220423
  Serious: No
  Sender: FDA-Public Use
  Company Number: None

PATIENT
  Age: 63 Year
  Sex: Female

DRUGS (1)
  1. AUBAGIO [Suspect]
     Active Substance: TERIFLUNOMIDE
     Dosage: FREQUENCY : DAILY?
     Route: 048
     Dates: start: 202108, end: 20220203

REACTIONS (5)
  - Lethargy [None]
  - Fatigue [None]
  - Exercise tolerance decreased [None]
  - Therapy change [None]
  - Therapy cessation [None]

NARRATIVE: CASE EVENT DATE: 20220204
